FAERS Safety Report 6421630-1 (Version None)
Quarter: 2009Q4

REPORT INFORMATION
  Report Type: 
  Country: None (occurrence: None)
  Receive Date: 20091029
  Receipt Date: 20091029
  Transmission Date: 20100525
  Serious: No
  Sender: FDA-Public Use
  Company Number: None

PATIENT
  Age: 19 Year
  Sex: Female
  Weight: 78.0187 kg

DRUGS (1)
  1. YAZ [Suspect]
     Indication: ORAL CONTRACEPTION
     Dosage: 1 TABLET 1X DAILY ORAL
     Route: 048
     Dates: start: 20071025, end: 20090212

REACTIONS (2)
  - GALLBLADDER DISORDER [None]
  - MENSTRUAL DISORDER [None]
